FAERS Safety Report 8023924-5 (Version None)
Quarter: 2011Q4

REPORT INFORMATION
  Report Type: 
  Country: None (occurrence: None)
  Receive Date: 20111230
  Receipt Date: 20111213
  Transmission Date: 20120403
  Serious: Yes (Other)
  Sender: FDA-Public Use
  Company Number: JPI-P-018539

PATIENT
  Age: 48 Year
  Sex: Female

DRUGS (3)
  1. HALOPERIDOL [Concomitant]
  2. XYREM [Suspect]
     Indication: CATAPLEXY
     Dosage: 4.5 GM (2.25 GM,2 IN 1 D),ORAL
     Route: 048
     Dates: start: 20111111
  3. VENLAFAXINE [Concomitant]

REACTIONS (9)
  - MENTAL DISORDER [None]
  - VICTIM OF SEXUAL ABUSE [None]
  - PSYCHOTIC DISORDER [None]
  - CONFUSIONAL STATE [None]
  - LOSS OF CONSCIOUSNESS [None]
  - HYPERSOMNIA [None]
  - SOMNOLENCE [None]
  - INCORRECT DOSE ADMINISTERED [None]
  - INSOMNIA [None]
